FAERS Safety Report 10206274 (Version 2)
Quarter: 2014Q2

REPORT INFORMATION
  Report Type: Report from Study
  Country: FR (occurrence: FR)
  Receive Date: 20140530
  Receipt Date: 20140530
  Transmission Date: 20141212
  Serious: Yes (Death, Other)
  Sender: FDA-Public Use
  Company Number: FR-CELGENEUS-056-21880-14043641

PATIENT
  Age: 80 Year
  Sex: Female

DRUGS (1)
  1. REVLIMID [Suspect]
     Indication: PLASMA CELL MYELOMA
     Route: 048
     Dates: start: 201309, end: 201402

REACTIONS (7)
  - Thrombocytopenia [Fatal]
  - Acute pulmonary oedema [Fatal]
  - Septic shock [Fatal]
  - Hypercalcaemia [Recovered/Resolved]
  - Fatigue [Fatal]
  - Plasma cell myeloma [Fatal]
  - No therapeutic response [Fatal]
